FAERS Safety Report 5336881-7 (Version None)
Quarter: 2007Q2

REPORT INFORMATION
  Report Type: 
  Country: None (occurrence: None)
  Receive Date: 20070524
  Receipt Date: 20070524
  Transmission Date: 20071010
  Serious: Yes (Other)
  Sender: FDA-Public Use
  Company Number: None

PATIENT
  Sex: Female
  Weight: 65.7716 kg

DRUGS (1)
  1. ABILIFY [Suspect]
     Indication: BIPOLAR DISORDER
     Dosage: 5-15MG HS PO
     Route: 048
     Dates: start: 20040524, end: 20070407

REACTIONS (2)
  - DYSTONIA [None]
  - TARDIVE DYSKINESIA [None]
